FAERS Safety Report 11825221 (Version 1)
Quarter: 2015Q4

REPORT INFORMATION
  Report Type: Spontaneous
  Country: US (occurrence: US)
  Receive Date: 20151211
  Receipt Date: 20151211
  Transmission Date: 20160305
  Serious: Yes (Other)
  Sender: FDA-Public Use
  Company Number: US-TEVA-617723ACC

PATIENT
  Age: 36 Year
  Sex: Female
  Weight: 100.33 kg

DRUGS (3)
  1. ALBUTEROL INHALER [Concomitant]
     Active Substance: ALBUTEROL
  2. BIOTIN [Concomitant]
     Active Substance: BIOTIN
  3. PARAGARD T 380A [Suspect]
     Active Substance: COPPER
     Indication: CONTRACEPTION
     Dates: start: 20151112, end: 20151201

REACTIONS (3)
  - Device dislocation [Recovered/Resolved]
  - Muscle spasms [Recovered/Resolved]
  - Pollakiuria [Recovered/Resolved]

NARRATIVE: CASE EVENT DATE: 20151201
